FAERS Safety Report 19521418 (Version 1)
Quarter: 2021Q3

REPORT INFORMATION
  Report Type: Spontaneous
  Country: SE (occurrence: SE)
  Receive Date: 20210712
  Receipt Date: 20210712
  Transmission Date: 20211014
  Serious: Yes (Hospitalization)
  Sender: FDA-Public Use
  Company Number: SE-TEVA-2021-SE-1931566

PATIENT
  Age: 60 Year
  Sex: Male

DRUGS (8)
  1. FELODIPINE. [Concomitant]
     Active Substance: FELODIPINE
     Dosage: 10MG,DEPOT TABLETS
     Dates: start: 20170713
  2. ALVEDON 500 MG FILMDRAGERAD TABLETT [Concomitant]
     Active Substance: ACETAMINOPHEN
     Dosage: 3000MG
     Dates: start: 20201020
  3. FOLACIN 1 MG TABLETT [Concomitant]
     Dosage: 1MG
     Dates: start: 20210501
  4. ANTABUS 400 MG BRUSTABLETT [Suspect]
     Active Substance: DISULFIRAM
     Indication: ALCOHOLISM
     Dates: start: 20210514, end: 20210614
  5. EMOVAT 0,05 % KRAM [Concomitant]
     Dates: start: 20180504
  6. ACETYLCYSTEINE. [Concomitant]
     Active Substance: ACETYLCYSTEINE
     Dosage: 1X2?3, 200MG
     Dates: start: 20180905
  7. ENALAPRIL [Concomitant]
     Active Substance: ENALAPRIL
     Dosage: 10MG
     Dates: start: 20180109
  8. SPIOLTO RESPIMAT 2,5 MIKROGRAM/2,5 MIKROGRAM PER PUFF INHALATIONSVATSK [Concomitant]
     Dosage: 2DF
     Dates: start: 20180906

REACTIONS (1)
  - Hepatitis acute [Not Recovered/Not Resolved]

NARRATIVE: CASE EVENT DATE: 20210611
